FAERS Safety Report 24119539 (Version 1)
Quarter: 2024Q3

REPORT INFORMATION
  Report Type: Spontaneous
  Country: PT (occurrence: PT)
  Receive Date: 20240722
  Receipt Date: 20240722
  Transmission Date: 20241016
  Serious: Yes (Other)
  Sender: MERCK
  Company Number: PT-009507513-2407PRT011470

PATIENT
  Age: 69 Year
  Sex: Male

DRUGS (2)
  1. PEMBROLIZUMAB [Suspect]
     Active Substance: PEMBROLIZUMAB
     Indication: Adenocarcinoma gastric
     Dosage: UNK UNK, CYCLICAL
     Dates: start: 202210
  2. PEMBROLIZUMAB [Suspect]
     Active Substance: PEMBROLIZUMAB
     Dosage: UNK
     Dates: start: 202301, end: 202402

REACTIONS (6)
  - Immune-mediated hypophysitis [Recovered/Resolved]
  - Immune-mediated arthritis [Recovered/Resolved]
  - Polyarthritis [Unknown]
  - Dermatitis bullous [Unknown]
  - Pulmonary fibrosis [Unknown]
  - Therapy partial responder [Unknown]

NARRATIVE: CASE EVENT DATE: 20230201
